FAERS Safety Report 5334263-5 (Version None)
Quarter: 2007Q2

REPORT INFORMATION
  Report Type: 
  Country: None (occurrence: None)
  Receive Date: 20070522
  Receipt Date: 20070507
  Transmission Date: 20071010
  Serious: Yes (Life-Threatening)
  Sender: FDA-Public Use
  Company Number: 013177

PATIENT
  Age: 40 Year
  Sex: Female
  Weight: 102.9 kg

DRUGS (12)
  1. ENJUVIA [Suspect]
     Indication: HORMONE REPLACEMENT THERAPY
     Dosage: 1.25 MG, SINGLE, ORAL
     Route: 048
     Dates: start: 20070308, end: 20070308
  2. SYNTHROID [Concomitant]
  3. PRINZIDE [Concomitant]
  4. AMBIEN [Concomitant]
  5. LEXAPRO [Concomitant]
  6. FLEXERIL [Concomitant]
  7. SINGULAIR [Concomitant]
  8. VITAMIN E [Concomitant]
  9. PRIMROSE [Concomitant]
  10. IBUPROFEN [Concomitant]
  11. FLAXSEED OIL (LINSEED OIL) [Concomitant]
  12. OSCAL 500-D (COLECALCIFEROL, CALCIUM) [Concomitant]

REACTIONS (2)
  - DYSPHAGIA [None]
  - DYSPNOEA [None]
